FAERS Safety Report 5358673-5 (Version None)
Quarter: 2007Q2

REPORT INFORMATION
  Report Type: 
  Country: None (occurrence: None)
  Receive Date: 20070615
  Receipt Date: 20070612
  Transmission Date: 20071010
  Serious: Yes (Other)
  Sender: FDA-Public Use
  Company Number: US-BRISTOL-MYERS SQUIBB COMPANY-13810999

PATIENT
  Age: 72 Year
  Sex: Male
  Weight: 72 kg

DRUGS (3)
  1. CETUXIMAB [Suspect]
     Indication: NASOPHARYNGEAL CANCER
     Route: 042
     Dates: start: 20060309, end: 20060309
  2. BEVACIZUMAB [Suspect]
     Indication: NASOPHARYNGEAL CANCER
     Route: 042
     Dates: start: 20060302, end: 20060302
  3. ERLOTINIB [Suspect]
     Indication: NASOPHARYNGEAL CANCER
     Route: 048
     Dates: start: 20060315

REACTIONS (6)
  - DYSPEPSIA [None]
  - FATIGUE [None]
  - FEELING COLD [None]
  - MALAISE [None]
  - MUCOSAL INFLAMMATION [None]
  - PERIODONTAL DISEASE [None]
